FAERS Safety Report 11987948 (Version 1)
Quarter: 2016Q1

REPORT INFORMATION
  Report Type: Report from Study
  Country: CA (occurrence: CA)
  Receive Date: 20160202
  Receipt Date: 20160202
  Transmission Date: 20160526
  Serious: Yes (Hospitalization, Other)
  Sender: FDA-Public Use
  Company Number: PHHY2015CA144003

PATIENT
  Sex: Female

DRUGS (3)
  1. XGEVA [Concomitant]
     Active Substance: DENOSUMAB
     Indication: PRODUCT USED FOR UNKNOWN INDICATION
     Route: 065
  2. AFINITOR [Suspect]
     Active Substance: EVEROLIMUS
     Indication: BREAST CANCER
     Dosage: 10 MG, QD
     Route: 048
     Dates: start: 20151005
  3. EXEMESTANE. [Concomitant]
     Active Substance: EXEMESTANE
     Indication: PRODUCT USED FOR UNKNOWN INDICATION
     Dosage: UNK
     Route: 065

REACTIONS (21)
  - Rhinorrhoea [Unknown]
  - Dyspepsia [Unknown]
  - Stomatitis [Unknown]
  - Pyrexia [Unknown]
  - Pruritus [Unknown]
  - Malaise [Recovering/Resolving]
  - Bone pain [Recovering/Resolving]
  - Tremor [Unknown]
  - Cough [Unknown]
  - Acne [Unknown]
  - Dry mouth [Unknown]
  - Capillary disorder [Recovering/Resolving]
  - Decreased immune responsiveness [Recovering/Resolving]
  - Nasopharyngitis [Unknown]
  - Second primary malignancy [Unknown]
  - Lacrimation increased [Unknown]
  - Ageusia [Unknown]
  - Weight decreased [Unknown]
  - Bladder cancer [Unknown]
  - Nasal dryness [Unknown]
  - Decreased appetite [Unknown]
